FAERS Safety Report 14867517 (Version 1)
Quarter: 2018Q2

REPORT INFORMATION
  Report Type: Spontaneous
  Country: BR (occurrence: BR)
  Receive Date: 20180508
  Receipt Date: 20180508
  Transmission Date: 20180711
  Serious: Yes (Other)
  Sender: FDA-Public Use
  Company Number: BR-BIOMARINAP-BR-2018-118083

PATIENT
  Sex: Male
  Weight: 73 kg

DRUGS (1)
  1. ALDURAZYME [Suspect]
     Active Substance: LARONIDASE
     Indication: MUCOPOLYSACCHARIDOSIS I
     Dosage: 26 DF, QOW
     Route: 041
     Dates: start: 20090801

REACTIONS (4)
  - Wound infection bacterial [Not Recovered/Not Resolved]
  - Rhinitis allergic [Unknown]
  - Pyrexia [Unknown]
  - Influenza [Recovering/Resolving]
